FAERS Safety Report 12781337 (Version 2)
Quarter: 2017Q1

REPORT INFORMATION
  Report Type: Report from Study
  Country: JP (occurrence: JP)
  Receive Date: 20160926
  Receipt Date: 20170310
  Transmission Date: 20170428
  Serious: Yes (Hospitalization, Other)
  Sender: FDA-Public Use
  Company Number: JP-ASTRAZENECA-2016SE80939

PATIENT
  Age: 27875 Day
  Sex: Male

DRUGS (4)
  1. VILDAGLIPTIN [Concomitant]
     Active Substance: VILDAGLIPTIN
     Indication: TYPE 2 DIABETES MELLITUS
     Dates: start: 20160205
  2. ONGLYZA [Suspect]
     Active Substance: SAXAGLIPTIN HYDROCHLORIDE
     Indication: TYPE 2 DIABETES MELLITUS
     Route: 048
     Dates: start: 20150113, end: 20160205
  3. VALTREX [Suspect]
     Active Substance: VALACYCLOVIR HYDROCHLORIDE
     Indication: HERPES ZOSTER
     Route: 048
  4. AMLODIPINE [Concomitant]
     Active Substance: AMLODIPINE BESYLATE
     Indication: HYPERTENSION
     Route: 048

REACTIONS (9)
  - Femoral neck fracture [Recovered/Resolved]
  - Diverticulum intestinal haemorrhagic [Recovered/Resolved]
  - Gastrointestinal haemorrhage [Recovered/Resolved]
  - Fall [Unknown]
  - Herpes zoster [Recovered/Resolved]
  - Toxic encephalopathy [Recovered/Resolved]
  - Peripheral arterial occlusive disease [Recovering/Resolving]
  - Haemorrhagic anaemia [Unknown]
  - Skin ulcer [Recovering/Resolving]

NARRATIVE: CASE EVENT DATE: 20150924
